FAERS Safety Report 10178029 (Version 1)
Quarter: 2014Q2

REPORT INFORMATION
  Report Type: Spontaneous
  Country: DK (occurrence: DK)
  Receive Date: 20140517
  Receipt Date: 20140517
  Transmission Date: 20141212
  Serious: Yes (Disabling, Other)
  Sender: FDA-Public Use
  Company Number: DK-ABBVIE-14K-044-1237846-00

PATIENT
  Age: 48 Year
  Sex: Male

DRUGS (2)
  1. DEPAKINE RETARD [Suspect]
     Indication: EPILEPSY
     Dosage: EXTENDED RELEASE, AT BEDTIME
     Route: 048
     Dates: start: 200306
  2. PONDOCILLIN [Interacting]
     Indication: PNEUMONIA
     Route: 048
     Dates: start: 20131227

REACTIONS (6)
  - Altered state of consciousness [Unknown]
  - Encephalopathy [Recovered/Resolved]
  - Drug interaction [Unknown]
  - Rash [Unknown]
  - Confusional state [Unknown]
  - Headache [Unknown]
